FAERS Safety Report 8414246-9 (Version None)
Quarter: 2012Q2

REPORT INFORMATION
  Report Type: 
  Country: None (occurrence: None)
  Receive Date: 20120605
  Receipt Date: 20120531
  Transmission Date: 20120825
  Serious: Yes (Life-Threatening, Hospitalization, Disabling)
  Sender: FDA-Public Use
  Company Number: GB-PFIZER INC-2012106454

PATIENT
  Age: 73 Year
  Sex: Male

DRUGS (1)
  1. IBUPROFEN [Suspect]
     Indication: OSTEOARTHRITIS
     Dosage: 600 MG, UNK
     Route: 048
     Dates: start: 20111102, end: 20111130

REACTIONS (1)
  - CEREBROVASCULAR ACCIDENT [None]
